FAERS Safety Report 10459389 (Version 4)
Quarter: 2014Q4

REPORT INFORMATION
  Report Type: Report from Study
  Country: BR (occurrence: BR)
  Receive Date: 20140917
  Receipt Date: 20141011
  Transmission Date: 20150528
  Serious: Yes (Disabling)
  Sender: FDA-Public Use
  Company Number: BR-ABBVIE-14K-020-1281706-00

PATIENT
  Age: 45 Year
  Sex: Female
  Weight: 51 kg

DRUGS (3)
  1. HUMIRA [Suspect]
     Active Substance: ADALIMUMAB
     Indication: RHEUMATOID ARTHRITIS
     Route: 058
     Dates: start: 201406, end: 201409
  2. HUMIRA [Suspect]
     Active Substance: ADALIMUMAB
     Indication: PSORIATIC ARTHROPATHY
  3. PREMARIN [Concomitant]
     Active Substance: ESTROGENS, CONJUGATED
     Indication: HORMONE REPLACEMENT THERAPY
     Route: 048
     Dates: start: 2003

REACTIONS (9)
  - Psoriasis [Unknown]
  - Pruritus generalised [Recovering/Resolving]
  - Influenza [Recovered/Resolved]
  - Varicella [Unknown]
  - Rash [Unknown]
  - Pruritus [Recovering/Resolving]
  - Pain [Unknown]
  - Rash macular [Recovering/Resolving]
  - Skin wound [Recovering/Resolving]

NARRATIVE: CASE EVENT DATE: 2014
